FAERS Safety Report 9013698 (Version 1)
Quarter: 2013Q1

REPORT INFORMATION
  Report Type: Spontaneous
  Country: US (occurrence: None)
  Receive Date: 20130108
  Receipt Date: 20130108
  Transmission Date: 20140127
  Serious: Yes (Other)
  Sender: FDA-Public Use
  Company Number: None

PATIENT
  Age: 49 Year
  Sex: Male

DRUGS (1)
  1. HUMIRA [Suspect]
     Indication: CROHN^S DISEASE
     Dosage: 40 MG ONCE A WEEK SUB Q
     Route: 058
     Dates: start: 20120927, end: 20130104

REACTIONS (3)
  - Bone pain [None]
  - Musculoskeletal stiffness [None]
  - Mood altered [None]
